FAERS Safety Report 10100657 (Version 1)
Quarter: 2014Q2

REPORT INFORMATION
  Report Type: Spontaneous
  Country: US (occurrence: US)
  Receive Date: 20140423
  Receipt Date: 20140423
  Transmission Date: 20141212
  Serious: No
  Sender: FDA-Public Use
  Company Number: US-009507513-1404USA011173

PATIENT
  Sex: Female

DRUGS (1)
  1. INTRONA [Suspect]
     Indication: HEPATITIS C
     Dosage: THREE TIMES A WEEK
     Dates: start: 19920101, end: 19920114

REACTIONS (19)
  - Immune system disorder [Unknown]
  - Pain [Unknown]
  - Myalgia [Unknown]
  - Nasopharyngitis [Unknown]
  - Chills [Unknown]
  - Pyrexia [Unknown]
  - Tremor [Unknown]
  - Pruritus [Unknown]
  - Insomnia [Unknown]
  - Nausea [Unknown]
  - Hepatitis C RNA increased [Unknown]
  - Drug ineffective [Unknown]
  - Therapeutic response decreased [Unknown]
  - Somnolence [Unknown]
  - Rash [Unknown]
  - Fatigue [Unknown]
  - Depression [Unknown]
  - Activities of daily living impaired [Unknown]
  - Malaise [Unknown]
